FAERS Safety Report 6324713-X (Version None)
Quarter: 2009Q3

REPORT INFORMATION
  Report Type: 
  Country: None (occurrence: None)
  Receive Date: 20090824
  Receipt Date: 20090506
  Transmission Date: 20100115
  Serious: No
  Sender: FDA-Public Use
  Company Number: US-ABBOTT-09P-163-0571888-00

PATIENT
  Sex: Female
  Weight: 83.99 kg

DRUGS (8)
  1. NIASPAN [Suspect]
     Indication: BLOOD CHOLESTEROL INCREASED
     Dates: start: 20090301, end: 20090401
  2. NIASPAN [Suspect]
     Dates: start: 20090401
  3. LEXAPRO [Concomitant]
     Indication: DEPRESSION
     Dates: start: 19990101
  4. ESTRADIOL [Concomitant]
     Indication: DRUG USE FOR UNKNOWN INDICATION
  5. PROJESTRONE [Concomitant]
     Indication: DRUG USE FOR UNKNOWN INDICATION
     Dosage: 25 DAYS ON, 5 OFF
  6. TRICOR [Concomitant]
     Indication: BLOOD CHOLESTEROL INCREASED
     Dates: start: 20080901
  7. AMBIEN [Concomitant]
     Indication: INSOMNIA
     Dosage: 1/2 - 10 MG TABLET EVERY NIGHT
  8. HYDROCLORATE [Concomitant]
     Indication: DRUG USE FOR UNKNOWN INDICATION
     Dosage: 1/2 - 25 MG PILL EVERY DAY

REACTIONS (2)
  - DEPRESSION [None]
  - DRUG DOSE OMISSION [None]
